FAERS Safety Report 6117402-8 (Version None)
Quarter: 2009Q1

REPORT INFORMATION
  Report Type: 
  Country: None (occurrence: None)
  Receive Date: 20090314
  Receipt Date: 20090115
  Transmission Date: 20090719
  Serious: No
  Sender: FDA-Public Use
  Company Number: US-ABBOTT-09P-163-0498351-00

PATIENT
  Sex: Female
  Weight: 76.272 kg

DRUGS (16)
  1. HUMIRA [Suspect]
     Indication: COLITIS ULCERATIVE
     Route: 058
     Dates: start: 20081231
  2. TOPROL-XL [Concomitant]
     Indication: HYPERTENSION
     Route: 048
  3. FLECAINIDE ACETATE [Concomitant]
     Indication: HYPERTENSION
     Route: 048
  4. PREVACID [Concomitant]
     Indication: GASTROOESOPHAGEAL REFLUX DISEASE
     Route: 048
  5. SYNTHROID [Concomitant]
     Indication: THYROIDECTOMY
     Route: 048
  6. SIMVASTATIN [Concomitant]
     Indication: BLOOD CHOLESTEROL
     Route: 048
  7. DIAZEPAM [Concomitant]
     Indication: VERTIGO
     Route: 048
  8. PREMPRO [Concomitant]
     Indication: HORMONE REPLACEMENT THERAPY
     Dosage: 0.3/1.5 DAILY
     Route: 048
  9. PENTASA [Concomitant]
     Indication: COLITIS ULCERATIVE
     Route: 048
  10. ASTELIN [Concomitant]
     Indication: VERTIGO
     Dosage: 2 SPRAYS EACH NOSTRIL DAILY
     Route: 045
  11. CETIRIZINE [Concomitant]
     Indication: HYPERSENSITIVITY
     Route: 048
  12. OS-CAL D [Concomitant]
     Indication: MINERAL SUPPLEMENTATION
     Route: 048
  13. OS-CAL D [Concomitant]
     Indication: MUSCLE SPASMS
  14. LOVAZA [Concomitant]
     Indication: SUPPLEMENTATION THERAPY
     Route: 048
  15. PAREGORIC LIQ WITH KAOPECTATE [Concomitant]
     Indication: DIARRHOEA
     Route: 048
  16. TEMAZEPAM [Concomitant]
     Indication: INSOMNIA
     Route: 048

REACTIONS (6)
  - DRUG DELIVERY SYSTEM MALFUNCTION [None]
  - HEADACHE [None]
  - INCORRECT DOSE ADMINISTERED [None]
  - INJECTION SITE HAEMORRHAGE [None]
  - OROPHARYNGEAL PAIN [None]
  - POSTNASAL DRIP [None]
